FAERS Safety Report 8785606 (Version 4)
Quarter: 2013Q3

REPORT INFORMATION
  Report Type: Report from Study
  Country: JP (occurrence: JP)
  Receive Date: 20120914
  Receipt Date: 20130821
  Transmission Date: 20140515
  Serious: Yes (Other)
  Sender: FDA-Public Use
  Company Number: JP-VERTEX PHARMACEUTICAL INC.-2012-020875

PATIENT
  Age: 58 Year
  Sex: Female

DRUGS (25)
  1. VX-950 (TELAPREVIR) [Suspect]
     Indication: CHRONIC HEPATITIS C
     Dosage: 2250 MG, QD
     Route: 048
     Dates: start: 20120608, end: 20120628
  2. VX-950 (TELAPREVIR) [Suspect]
     Dosage: 2250 MG, QD
     Route: 048
     Dates: start: 20120705, end: 20120801
  3. VX-950 (TELAPREVIR) [Suspect]
     Dosage: 750 MG, QD
     Route: 048
     Dates: start: 20120809, end: 20120912
  4. RIBAVIRIN [Suspect]
     Indication: CHRONIC HEPATITIS C
     Dosage: 400 MG, QD
     Route: 048
     Dates: start: 20120608, end: 20120627
  5. RIBAVIRIN [Suspect]
     Dosage: 200 MG, QD
     Route: 048
     Dates: start: 20120628, end: 20120628
  6. RIBAVIRIN [Suspect]
     Dosage: 100 MG, QD
     Route: 048
     Dates: start: 20120705, end: 20120801
  7. RIBAVIRIN [Suspect]
     Dosage: 200 MG, QW
     Route: 048
     Dates: start: 20120830, end: 20120912
  8. RIBAVIRIN [Suspect]
     Dosage: 200 MG, TWICE WEEKLY
     Route: 048
     Dates: start: 20120913, end: 20120926
  9. RIBAVIRIN [Suspect]
     Dosage: 200 MG, QD
     Route: 048
     Dates: start: 20120927, end: 20121107
  10. RIBAVIRIN [Suspect]
     Dosage: 400 MG, QD
     Route: 048
     Dates: start: 20121108
  11. PEGINTERFERON ALFA-2B [Suspect]
     Indication: CHRONIC HEPATITIS C
     Dosage: 1.6 ?G/KG, QW
     Route: 058
     Dates: start: 20120608, end: 20120613
  12. PEGINTERFERON ALFA-2B [Suspect]
     Dosage: 0.8 ?G/KG, QW
     Route: 058
     Dates: start: 20120614, end: 20120627
  13. PEGINTERFERON ALFA-2B [Suspect]
     Dosage: 1.6 ?G/KG, QW
     Route: 058
     Dates: start: 20120705, end: 20120801
  14. PEGINTERFERON ALFA-2B [Suspect]
     Dosage: 0.8 ?G/KG, QW
     Route: 058
     Dates: start: 20120809, end: 20121024
  15. PEGINTERFERON ALFA-2B [Suspect]
     Dosage: 0.6 ?G/KG, QW
     Route: 058
     Dates: start: 20121025, end: 20121101
  16. PEGINTERFERON ALFA-2B [Suspect]
     Dosage: 0.8 ?G/KG, QW
     Route: 058
     Dates: start: 20121102
  17. URSO [Concomitant]
     Dosage: 300 MG, QD
     Route: 048
  18. PROHEPARUM [Concomitant]
     Dosage: 600 MG, QD
     Route: 048
  19. PROHEPARUM [Concomitant]
     Dosage: 6 DF, UNK
     Route: 048
  20. URSODEOXYCHOLIC ACID [Concomitant]
     Dosage: 300 MG, QD
     Route: 048
  21. SOLDEM 3AG [Concomitant]
     Dosage: UNK
     Route: 042
     Dates: end: 20120920
  22. VITAMEDIN [Concomitant]
     Dosage: UNK
     Route: 042
     Dates: end: 20120920
  23. VITAMIN C [Concomitant]
     Dosage: UNK
     Route: 042
     Dates: end: 20120920
  24. PRIMPERAN [Concomitant]
     Dosage: UNK
     Route: 042
     Dates: end: 20120920
  25. CALONAL [Concomitant]
     Dosage: 400 MG, QD
     Route: 048

REACTIONS (2)
  - Retinopathy [Recovered/Resolved]
  - Platelet count decreased [Recovered/Resolved]
